FAERS Safety Report 4528625-3 (Version None)
Quarter: 2004Q4

REPORT INFORMATION
  Report Type: 
  Country: None (occurrence: None)
  Receive Date: 20041216
  Receipt Date: 20041208
  Transmission Date: 20050328
  Serious: Yes (Hospitalization)
  Sender: FDA-Public Use
  Company Number: PHBS2004JP16546

PATIENT
  Age: 40 Year
  Sex: Female

DRUGS (4)
  1. RITALIN [Suspect]
     Indication: DEPRESSION
     Route: 065
  2. PSYCHIATRIC THERAPY [Concomitant]
  3. CLOMIPRAMINE HCL [Suspect]
  4. SULPIRIDE [Suspect]

REACTIONS (9)
  - AGGRESSION [None]
  - ANXIETY [None]
  - APATHY [None]
  - EMOTIONAL DISTRESS [None]
  - EXCITABILITY [None]
  - FATIGUE [None]
  - IRRITABILITY [None]
  - SUICIDAL IDEATION [None]
  - SUICIDE ATTEMPT [None]
